FAERS Safety Report 7273264-7 (Version None)
Quarter: 2011Q1

REPORT INFORMATION
  Report Type: 
  Country: None (occurrence: None)
  Receive Date: 20110203
  Receipt Date: 20101229
  Transmission Date: 20110831
  Serious: No
  Sender: FDA-Public Use
  Company Number: US-ABBOTT-11P-163-0694716-00

PATIENT
  Sex: Female
  Weight: 79.45 kg

DRUGS (3)
  1. FLUOXETINE [Concomitant]
     Indication: PREMENSTRUAL SYNDROME
  2. LEVOTHYROXINE SODIUM [Suspect]
     Indication: HYPOTHYROIDISM
     Dates: start: 20100901
  3. SYNTHROID [Suspect]
     Indication: HYPOTHYROIDISM
     Dates: start: 20060101, end: 20100901

REACTIONS (6)
  - HELICOBACTER GASTRITIS [None]
  - INCORRECT DOSE ADMINISTERED [None]
  - PRURITUS [None]
  - RASH [None]
  - SWELLING FACE [None]
  - ASTHMA [None]
